FAERS Safety Report 4519876-2 (Version None)
Quarter: 2004Q4

REPORT INFORMATION
  Report Type: 
  Country: None (occurrence: None)
  Receive Date: 20041202
  Receipt Date: 20041202
  Transmission Date: 20050328
  Serious: Yes (Life-Threatening)
  Sender: FDA-Public Use
  Company Number: None

PATIENT
  Age: 15 Year
  Sex: Female
  Weight: 43 kg

DRUGS (5)
  1. ELSPAR [Suspect]
     Indication: ACUTE LYMPHOCYTIC LEUKAEMIA
     Dosage: 13,800 U IM X 6 DOSES
     Route: 030
     Dates: start: 20040812, end: 20040830
  2. VINCRISTINE [Concomitant]
  3. DAUNOMYCIN [Concomitant]
  4. METHOTREXATE [Concomitant]
  5. PREDNISONE TAB [Concomitant]

REACTIONS (6)
  - BRAIN SCAN ABNORMAL [None]
  - HYPOAESTHESIA [None]
  - LUNG INFILTRATION [None]
  - NERVOUS SYSTEM DISORDER [None]
  - SEPTIC EMBOLUS [None]
  - SPEECH DISORDER [None]
